FAERS Safety Report 25155972 (Version 4)
Quarter: 2025Q3

REPORT INFORMATION
  Report Type: Report from Study
  Country: CO (occurrence: CO)
  Receive Date: 20250403
  Receipt Date: 20250721
  Transmission Date: 20251020
  Serious: Yes (Hospitalization)
  Sender: BIOGEN
  Company Number: CO-BIOGEN-2024BI01270051

PATIENT
  Sex: Female
  Weight: 52 kg

DRUGS (14)
  1. TYSABRI [Suspect]
     Active Substance: NATALIZUMAB
     Indication: Multiple sclerosis
     Route: 050
     Dates: start: 20170116, end: 202401
  2. TYSABRI [Suspect]
     Active Substance: NATALIZUMAB
     Route: 050
     Dates: start: 202401, end: 20241029
  3. TYSABRI [Suspect]
     Active Substance: NATALIZUMAB
     Route: 050
  4. MODAFINIL [Concomitant]
     Active Substance: MODAFINIL
     Indication: Cerebral disorder
     Route: 050
     Dates: start: 2016
  5. MEDROL [Concomitant]
     Active Substance: METHYLPREDNISOLONE
     Indication: Sleep disorder
     Dosage: HALF TABLET EVERY 24 HOURS
     Route: 050
     Dates: start: 2014
  6. MEDROL [Concomitant]
     Active Substance: METHYLPREDNISOLONE
     Dosage: HALF DAILY
     Route: 050
  7. MEDROL [Concomitant]
     Active Substance: METHYLPREDNISOLONE
     Route: 050
     Dates: start: 202503, end: 20250318
  8. PROPANOL (PROPRANOLOL HYDROCHLORIDE) [Concomitant]
     Active Substance: PROPRANOLOL HYDROCHLORIDE
     Indication: Depression
     Route: 050
     Dates: start: 2014
  9. PROPANOL (PROPRANOLOL HYDROCHLORIDE) [Concomitant]
     Active Substance: PROPRANOLOL HYDROCHLORIDE
     Dosage: HALF EVERY DAY
     Route: 050
  10. NITROFURANTOIN [Concomitant]
     Active Substance: NITROFURANTOIN
     Indication: Urinary tract infection
     Route: 050
     Dates: start: 2016
  11. NITROFURANTOIN [Concomitant]
     Active Substance: NITROFURANTOIN
     Route: 050
     Dates: start: 2021
  12. ATORVASTATIN [Concomitant]
     Active Substance: ATORVASTATIN
     Indication: Blood triglycerides increased
     Route: 050
     Dates: start: 2014
  13. TRAZODONE [Concomitant]
     Active Substance: TRAZODONE HYDROCHLORIDE
     Indication: Sleep disorder
     Dosage: START DATE ALSO REPORTED AS --2023
     Route: 050
     Dates: start: 2016
  14. Vigia [Concomitant]
     Indication: Product used for unknown indication
     Route: 050
     Dates: start: 2014

REACTIONS (7)
  - Multiple sclerosis [Not Recovered/Not Resolved]
  - Prescribed underdose [Recovered/Resolved]
  - Back pain [Recovered/Resolved]
  - Cough [Not Recovered/Not Resolved]
  - Weight decreased [Unknown]
  - Decreased appetite [Unknown]
  - Herpes zoster [Recovered/Resolved]

NARRATIVE: CASE EVENT DATE: 20230101
